FAERS Safety Report 9296933 (Version 1)
Quarter: 2013Q2

REPORT INFORMATION
  Report Type: Spontaneous
  Country: US (occurrence: US)
  Receive Date: 20130518
  Receipt Date: 20130518
  Transmission Date: 20140414
  Serious: Yes (Other)
  Sender: FDA-Public Use
  Company Number: US-ROCHE-784624

PATIENT
  Age: 19 Year
  Sex: Female
  Weight: 61.29 kg

DRUGS (2)
  1. ACCUTANE [Suspect]
     Indication: ACNE
     Route: 065
     Dates: start: 199504, end: 199509
  2. ACCUTANE [Suspect]
     Route: 065
     Dates: start: 199707, end: 199710

REACTIONS (6)
  - Crohn^s disease [Unknown]
  - Inflammatory bowel disease [Unknown]
  - Gastrointestinal haemorrhage [Unknown]
  - Irritable bowel syndrome [Unknown]
  - Vision blurred [Unknown]
  - Abdominal discomfort [Unknown]
